FAERS Safety Report 4851170-2 (Version None)
Quarter: 2005Q4

REPORT INFORMATION
  Report Type: 
  Country: None (occurrence: None)
  Receive Date: 20051208
  Receipt Date: 20051130
  Transmission Date: 20060501
  Serious: Yes (Hospitalization)
  Sender: FDA-Public Use
  Company Number: SU-2005-004343

PATIENT
  Sex: Male

DRUGS (1)
  1. WELCHOL [Suspect]
     Indication: BLOOD CHOLESTEROL INCREASED
     Dosage: 1875 MG BID PO
     Route: 048
     Dates: start: 20050830, end: 20050917

REACTIONS (4)
  - BLOOD POTASSIUM INCREASED [None]
  - HEADACHE [None]
  - INFECTION [None]
  - MYOCARDIAL INFARCTION [None]
